FAERS Safety Report 8185032-2 (Version None)
Quarter: 2012Q1

REPORT INFORMATION
  Report Type: 
  Country: None (occurrence: None)
  Receive Date: 20120305
  Receipt Date: 20120302
  Transmission Date: 20120608
  Serious: Yes (Death)
  Sender: FDA-Public Use
  Company Number: CO-B.I. PHARMACEUTICALS,INC./RIDGEFIELD-2012-RA-00048RA

PATIENT
  Age: 58 Year
  Sex: Male
  Weight: 70 kg

DRUGS (2)
  1. DABIGATRAN ETEXILATE [Suspect]
     Indication: EMBOLISM
  2. DABIGATRAN ETEXILATE [Suspect]
     Indication: HYPERCOAGULATION
     Dosage: 300 MG
     Route: 048
     Dates: start: 20120211, end: 20120301

REACTIONS (2)
  - HAEMOPTYSIS [None]
  - PULMONARY HAEMORRHAGE [None]
